FAERS Safety Report 9638023 (Version 1)
Quarter: 2013Q4

REPORT INFORMATION
  Report Type: Spontaneous
  Country: US (occurrence: None)
  Receive Date: 20131021
  Receipt Date: 20131021
  Transmission Date: 20140711
  Serious: Yes (Life-Threatening, Disabling)
  Sender: FDA-Public Use
  Company Number: None

PATIENT
  Age: 38 Year
  Sex: Female
  Weight: 124.74 kg

DRUGS (1)
  1. CITALOPRAM 40 MG [Suspect]
     Indication: ANXIETY
     Route: 048

REACTIONS (3)
  - Dizziness [None]
  - Headache [None]
  - Product substitution issue [None]
